FAERS Safety Report 12813804 (Version 2)
Quarter: 2017Q1

REPORT INFORMATION
  Report Type: Spontaneous
  Country: DE (occurrence: DE)
  Receive Date: 20161005
  Receipt Date: 20170131
  Transmission Date: 20170428
  Serious: Yes (Other)
  Sender: FDA-Public Use
  Company Number: DE-TEVA-695525GER

PATIENT
  Age: 58 Year
  Sex: Female
  Weight: 62 kg

DRUGS (4)
  1. CLEXANE [Concomitant]
     Active Substance: ENOXAPARIN SODIUM
     Route: 058
  2. DILTIAZEM-RATIOPHARM 60 MG TABLETTEN [Suspect]
     Active Substance: DILTIAZEM
     Indication: HYPERTONIA
  3. DILTIAZEM-RATIOPHARM 60 MG TABLETTEN [Suspect]
     Active Substance: DILTIAZEM
     Indication: DRUG LEVEL
     Dosage: 60 MILLIGRAM DAILY; 30MG-0-30MG
     Route: 048
     Dates: start: 20160903, end: 20160920
  4. PROGRAF [Concomitant]
     Active Substance: TACROLIMUS\TACROLIMUS ANHYDROUS

REACTIONS (2)
  - Drug eruption [Recovered/Resolved]
  - Drug cross-reactivity [Unknown]

NARRATIVE: CASE EVENT DATE: 20160917
